FAERS Safety Report 14994679 (Version 2)
Quarter: 2018Q3

REPORT INFORMATION
  Report Type: Spontaneous
  Country: PL (occurrence: PL)
  Receive Date: 20180611
  Receipt Date: 20180816
  Transmission Date: 20181010
  Serious: Yes (Life-Threatening, Hospitalization)
  Sender: FDA-Public Use
  Company Number: PHHY2018PL019400

PATIENT
  Age: 67 Year
  Sex: Male
  Weight: 98 kg

DRUGS (9)
  1. OFEV [Suspect]
     Active Substance: NINTEDANIB
     Indication: IDIOPATHIC PULMONARY FIBROSIS
     Dosage: 300 MG, QD
     Route: 048
     Dates: start: 201705
  2. BISOCARD [Concomitant]
     Active Substance: BISOPROLOL
     Indication: HYPERTENSION
     Dosage: 5 MG, QD
     Route: 048
  3. NINTEDANIB [Suspect]
     Active Substance: NINTEDANIB
     Indication: IDIOPATHIC PULMONARY FIBROSIS
     Dosage: 150 MG, QD
     Route: 048
  4. DIAPREL [Concomitant]
     Active Substance: GLICLAZIDE
     Indication: TYPE 2 DIABETES MELLITUS
     Dosage: 60 MG, QD
     Route: 048
  5. NINTEDANIB [Suspect]
     Active Substance: NINTEDANIB
     Dosage: 300 MG, UNK
     Route: 048
     Dates: start: 20180416
  6. OFEV [Suspect]
     Active Substance: NINTEDANIB
     Dosage: 300 MG, QD
     Route: 048
     Dates: start: 20180312
  7. ACETYLSALICYLIC ACID [Suspect]
     Active Substance: ASPIRIN
     Indication: PRODUCT USED FOR UNKNOWN INDICATION
     Dosage: 75 MG, QD
     Route: 048
  8. AMLOZEK [Concomitant]
     Active Substance: AMLODIPINE BESYLATE
     Indication: HYPERTENSION
     Dosage: 5 MG, QD
     Route: 048
  9. PRAVATOR [Concomitant]
     Indication: HYPERCHOLESTEROLAEMIA
     Dosage: 20 MG, QD
     Route: 065

REACTIONS (2)
  - Haemorrhage [Recovered/Resolved]
  - Lower gastrointestinal haemorrhage [Recovered/Resolved]

NARRATIVE: CASE EVENT DATE: 20180309
